FAERS Safety Report 13655699 (Version 3)
Quarter: 2017Q3

REPORT INFORMATION
  Report Type: Spontaneous
  Country: US (occurrence: US)
  Receive Date: 20170615
  Receipt Date: 20170908
  Transmission Date: 20171127
  Serious: No
  Sender: FDA-Public Use
  Company Number: US-PFIZER INC-2017260530

PATIENT
  Age: 76 Year
  Sex: Male

DRUGS (2)
  1. LAMISIL [Concomitant]
     Active Substance: TERBINAFINE HYDROCHLORIDE
     Indication: TINEA PEDIS
     Dosage: UNK
     Dates: start: 20170412
  2. KERYDIN [Suspect]
     Active Substance: TAVABOROLE
     Indication: NAIL INFECTION
     Dosage: UNK, 1X/DAY
     Route: 061
     Dates: start: 20160721

REACTIONS (4)
  - Scab [Unknown]
  - Erythema [Unknown]
  - Skin exfoliation [Recovering/Resolving]
  - Skin discolouration [Unknown]

NARRATIVE: CASE EVENT DATE: 20170601
